FAERS Safety Report 5905999-X (Version None)
Quarter: 2008Q4

REPORT INFORMATION
  Report Type: 
  Country: None (occurrence: None)
  Receive Date: 20081002
  Receipt Date: 20081001
  Transmission Date: 20090506
  Serious: Yes (Other)
  Sender: FDA-Public Use
  Company Number: A0750027A

PATIENT
  Age: 30 Year
  Sex: Female
  Weight: 79.5 kg

DRUGS (3)
  1. ALLI [Suspect]
     Indication: WEIGHT CONTROL
     Dates: start: 20080906
  2. ADIPEX [Concomitant]
  3. TRIAMTEREN HYDROCHLOROTHIAZIDE [Concomitant]

REACTIONS (6)
  - ANAL HAEMORRHAGE [None]
  - BACK PAIN [None]
  - DIARRHOEA HAEMORRHAGIC [None]
  - HAEMORRHOIDS [None]
  - RECTAL HAEMORRHAGE [None]
  - THROMBOSIS [None]
